FAERS Safety Report 8957731 (Version 1)
Quarter: 2012Q4

REPORT INFORMATION
  Report Type: 
  Country: DE (occurrence: DE)
  Receive Date: 20121211
  Receipt Date: 20121211
  Transmission Date: 20130627
  Serious: Yes (Other)
  Sender: FDA-Public Use
  Company Number: DE-JNJFOC-20121102252

PATIENT
  Age: 24 Year
  Sex: Female
  Weight: 47 kg

DRUGS (1)
  1. REMICADE [Suspect]
     Indication: CROHN^S DISEASE
     Route: 042
     Dates: start: 20121001, end: 20121001

REACTIONS (5)
  - Infusion related reaction [Recovered/Resolved]
  - Chest discomfort [Recovered/Resolved]
  - Panic disorder [Recovered/Resolved]
  - Dyspnoea [Recovered/Resolved]
  - Oxygen saturation decreased [Recovered/Resolved]
